FAERS Safety Report 5700717-2 (Version None)
Quarter: 2008Q2

REPORT INFORMATION
  Report Type: 
  Country: None (occurrence: None)
  Receive Date: 20080410
  Receipt Date: 20080115
  Transmission Date: 20081010
  Serious: No
  Sender: FDA-Public Use
  Company Number: A0703366A

PATIENT
  Age: 75 Year
  Sex: Female

DRUGS (6)
  1. TYKERB [Suspect]
     Indication: BREAST CANCER
     Dosage: 1250MG PER DAY
     Route: 048
     Dates: start: 20070901
  2. XELODA [Concomitant]
  3. ATENOLOL [Concomitant]
  4. FUROSEMIDE [Concomitant]
  5. CALCIUM [Concomitant]
  6. VITAMIN B6 [Concomitant]

REACTIONS (2)
  - DIARRHOEA [None]
  - FATIGUE [None]
